FAERS Safety Report 14994678 (Version 1)
Quarter: 2018Q2

REPORT INFORMATION
  Report Type: Spontaneous
  Country: BR (occurrence: BR)
  Receive Date: 20180611
  Receipt Date: 20180611
  Transmission Date: 20180711
  Serious: Yes (Life-Threatening, Other)
  Sender: FDA-Public Use
  Company Number: PHHY2018BR004950

PATIENT
  Age: 64 Year
  Sex: Female
  Weight: 66 kg

DRUGS (3)
  1. ALPRAZOLAM. [Suspect]
     Active Substance: ALPRAZOLAM
     Indication: PRODUCT USED FOR UNKNOWN INDICATION
     Dosage: UNK
     Route: 065
  2. OLCADIL [Suspect]
     Active Substance: CLOXAZOLAM
     Dosage: 0.5 DF  (HALF TABLET)
     Route: 048
     Dates: start: 20180518
  3. OLCADIL [Suspect]
     Active Substance: CLOXAZOLAM
     Indication: PANIC DISORDER
     Dosage: 1 MG, QD
     Route: 048

REACTIONS (4)
  - Drug dependence [Unknown]
  - Malaise [Recovering/Resolving]
  - Wrong technique in product usage process [Unknown]
  - Hypertension [Unknown]

NARRATIVE: CASE EVENT DATE: 20180518
